FAERS Safety Report 8995465 (Version 1)
Quarter: 2013Q1

REPORT INFORMATION
  Report Type: Spontaneous
  Country: US (occurrence: US)
  Receive Date: 20130103
  Receipt Date: 20130103
  Transmission Date: 20140127
  Serious: No
  Sender: FDA-Public Use
  Company Number: US-ABBOTT-12P-163-0918721-00

PATIENT
  Sex: Female
  Weight: 44.95 kg

DRUGS (2)
  1. SYNTHROID [Suspect]
     Indication: HYPOTHYROIDISM
     Route: 048
     Dates: start: 20120126
  2. SYNTHROID [Suspect]
     Route: 048
     Dates: start: 201106, end: 20120125

REACTIONS (1)
  - Weight decreased [Not Recovered/Not Resolved]
